FAERS Safety Report 9280478 (Version 2)
Quarter: 2013Q4

REPORT INFORMATION
  Report Type: Spontaneous
  Country: US (occurrence: US)
  Receive Date: 20130509
  Receipt Date: 20131119
  Transmission Date: 20140711
  Serious: Yes (Hospitalization)
  Sender: FDA-Public Use
  Company Number: US-BAYER-2013-055421

PATIENT
  Age: 16 Year
  Sex: Female

DRUGS (7)
  1. YAZ [Suspect]
  2. AUGMENTIN [Concomitant]
  3. FLONASE [Concomitant]
  4. DIFLUCAN [Concomitant]
  5. TOPAMAX [Concomitant]
  6. MOTRIN [Concomitant]
  7. AMOXICILLIN [Concomitant]
     Dosage: UNK UNK, BID
     Route: 048

REACTIONS (2)
  - Intracranial venous sinus thrombosis [None]
  - Jugular vein thrombosis [None]
